FAERS Safety Report 6923845-2 (Version None)
Quarter: 2010Q3

REPORT INFORMATION
  Report Type: 
  Country: None (occurrence: None)
  Receive Date: 20100813
  Receipt Date: 20090930
  Transmission Date: 20110219
  Serious: No
  Sender: FDA-Public Use
  Company Number: US-BRISTOL-MYERS SQUIBB COMPANY-14803365

PATIENT
  Sex: Male

DRUGS (2)
  1. REYATAZ [Suspect]
  2. NORVIR [Suspect]

REACTIONS (1)
  - BLOOD BILIRUBIN INCREASED [None]
